FAERS Safety Report 12368446 (Version 3)
Quarter: 2017Q1

REPORT INFORMATION
  Report Type: Spontaneous
  Country: US (occurrence: US)
  Receive Date: 20160513
  Receipt Date: 20170217
  Transmission Date: 20170428
  Serious: Yes (Hospitalization)
  Sender: FDA-Public Use
  Company Number: US-ASTRAZENECA-2016SE50502

PATIENT
  Age: 41 Year
  Sex: Male
  Weight: 105.7 kg

DRUGS (9)
  1. ATORVASTATIN [Concomitant]
     Active Substance: ATORVASTATIN
     Indication: HYPERLIPIDAEMIA
  2. DICYLOMINE [Concomitant]
  3. HUMALOG [Concomitant]
     Active Substance: INSULIN LISPRO
     Indication: DIABETES MELLITUS
     Dosage: 70-1000
     Route: 058
  4. TRULICITY [Concomitant]
     Active Substance: DULAGLUTIDE
     Indication: DIABETES MELLITUS
     Route: 058
     Dates: end: 201604
  5. ZOFRAN [Concomitant]
     Active Substance: ONDANSETRON HYDROCHLORIDE
  6. ASA [Concomitant]
     Active Substance: ASPIRIN
  7. FARXIGA [Suspect]
     Active Substance: DAPAGLIFLOZIN PROPANEDIOL
     Route: 048
     Dates: start: 201411, end: 201504
  8. XIGDUO XR [Suspect]
     Active Substance: DAPAGLIFLOZIN PROPANEDIOL\METFORMIN HYDROCHLORIDE
     Indication: TYPE 2 DIABETES MELLITUS
     Dosage: 5-1000 MG,DAILY
     Route: 048
     Dates: start: 20150415, end: 20160406
  9. TOUJEO [Concomitant]
     Active Substance: INSULIN GLARGINE
     Indication: DIABETES MELLITUS

REACTIONS (5)
  - Renal failure [Unknown]
  - Lactic acidosis [Unknown]
  - Diabetic ketoacidosis [Recovered/Resolved]
  - Haematemesis [Unknown]
  - Leukocytosis [Unknown]

NARRATIVE: CASE EVENT DATE: 20160406
